FAERS Safety Report 10032441 (Version 2)
Quarter: 2014Q3

REPORT INFORMATION
  Report Type: Spontaneous
  Country: IT (occurrence: None)
  Receive Date: 20140320
  Receipt Date: 20140708
  Transmission Date: 20150326
  Serious: Yes (Hospitalization)
  Sender: FDA-Public Use
  Company Number: AUR-APL-2014-03176

PATIENT
  Age: 50 Year
  Sex: Male

DRUGS (2)
  1. MIRTAZAPINE. [Suspect]
     Active Substance: MIRTAZAPINE
     Indication: PRODUCT USED FOR UNKNOWN INDICATION
     Dates: start: 1997
  2. DELORAZEPAM [Suspect]
     Active Substance: DELORAZEPAM
     Indication: PRODUCT USED FOR UNKNOWN INDICATION
     Dates: start: 1997

REACTIONS (4)
  - Intentional self-injury [None]
  - Bradykinesia [None]
  - Sopor [None]
  - Drug abuse [None]

NARRATIVE: CASE EVENT DATE: 20140309
